FAERS Safety Report 26054565 (Version 1)
Quarter: 2025Q4

REPORT INFORMATION
  Report Type: Spontaneous
  Country: US (occurrence: None)
  Receive Date: 20251117
  Receipt Date: 20251117
  Transmission Date: 20260118
  Serious: Yes (Hospitalization)
  Sender: FDA-CTU
  Company Number: None

PATIENT
  Sex: Male

DRUGS (11)
  1. PULMOZYME [Suspect]
     Active Substance: DORNASE ALFA
     Indication: Cystic fibrosis
     Dosage: OTHER FREQUENCY : INHALE 2.5 MLS BY NEB DAILY.  INCREASE TO TWICE DAILY WITH ILLNESS ;?
     Route: 055
     Dates: start: 20190326
  2. IALBUTEROL AER HFA [Concomitant]
  3. ALBUTEROL SULFATE [Concomitant]
     Active Substance: ALBUTEROL SULFATE
  4. AUGMENTIN SUS 250/5ML [Concomitant]
  5. BUDESONIDE SUS 0.5MG/2 [Concomitant]
  6. CETIRIZINE CHW 5MG [Concomitant]
  7. CETIRIZINE HCL [Concomitant]
     Active Substance: CETIRIZINE HYDROCHLORIDE
  8. METHYLPHENID TAB 18MG ER [Concomitant]
  9. MVW COMPLETE CHW D3000 [Concomitant]
  10. OMEGA 3 CAP 340MG [Concomitant]
  11. PERTZYE [Concomitant]
     Active Substance: PANCRELIPASE AMYLASE\PANCRELIPASE LIPASE\PANCRELIPASE PROTEASE

REACTIONS (1)
  - Hospitalisation [None]
